FAERS Safety Report 9515114 (Version 1)
Quarter: 2013Q3

REPORT INFORMATION
  Report Type: Spontaneous
  Country: FR (occurrence: FR)
  Receive Date: 20130911
  Receipt Date: 20130911
  Transmission Date: 20140515
  Serious: Yes (Hospitalization)
  Sender: FDA-Public Use
  Company Number: FR-ASTRAZENECA-2013SE67511

PATIENT
  Age: 27610 Day
  Sex: Female

DRUGS (8)
  1. ATACAND [Suspect]
     Route: 048
  2. AVLOCARDYL [Suspect]
     Route: 048
  3. PREVISCAN [Suspect]
     Route: 048
  4. XANAX [Suspect]
     Route: 048
     Dates: end: 20130522
  5. IMOVANE [Suspect]
     Route: 048
     Dates: end: 20130522
  6. SEROPRAM [Suspect]
     Route: 048
     Dates: start: 20130513, end: 20130519
  7. LAROXYL [Suspect]
     Route: 048
     Dates: start: 20130506, end: 20130520
  8. EFFERALGAN CODEINE [Concomitant]

REACTIONS (5)
  - Depressed level of consciousness [Recovered/Resolved]
  - Hypochloraemia [Unknown]
  - Somnolence [Unknown]
  - General physical health deterioration [Unknown]
  - Hyponatraemia [Recovered/Resolved]
